FAERS Safety Report 21065612 (Version 15)
Quarter: 2024Q2

REPORT INFORMATION
  Report Type: Report from Study
  Country: MX (occurrence: MX)
  Receive Date: 20220711
  Receipt Date: 20240404
  Transmission Date: 20240716
  Serious: Yes (Hospitalization, Disabling, Other)
  Sender: FDA-Public Use
  Company Number: MX-002147023-NVSC2022MX134467

PATIENT

DRUGS (11)
  1. RUXOLITINIB [Suspect]
     Active Substance: RUXOLITINIB
     Indication: Primary myelofibrosis
     Dosage: 15 MG, OTHER (EVERY 12 HOURS 3 TIMES A WEEK AND 4 TIMES A WEEK 15MG EVERY 24 HOURS )
     Route: 048
     Dates: start: 201908
  2. RUXOLITINIB [Suspect]
     Active Substance: RUXOLITINIB
     Indication: Polycythaemia vera
     Dosage: UNK
     Route: 048
     Dates: start: 2020
  3. RUXOLITINIB [Suspect]
     Active Substance: RUXOLITINIB
     Dosage: UNK (STARTED A MONTH AGO)
     Route: 048
     Dates: end: 20221004
  4. RUXOLITINIB [Suspect]
     Active Substance: RUXOLITINIB
     Dosage: UNK
     Route: 048
  5. RUXOLITINIB [Suspect]
     Active Substance: RUXOLITINIB
     Dosage: 40 MG DAILY
     Route: 048
     Dates: start: 2019
  6. RUXOLITINIB [Suspect]
     Active Substance: RUXOLITINIB
     Dosage: 30 MG DAILY 3 DAYS PER WEEK AND 15 MG DAILY 4
     Route: 065
  7. DANAZOL [Concomitant]
     Active Substance: DANAZOL
     Indication: Hepatitis
     Dosage: 200 MG, QD
     Route: 048
  8. DANAZOL [Concomitant]
     Active Substance: DANAZOL
     Indication: Myelofibrosis
  9. HYDREA [Concomitant]
     Active Substance: HYDROXYUREA
     Indication: Hypercalcaemia
     Dosage: 1 UNK, QD
     Route: 048
  10. HYDREA [Concomitant]
     Active Substance: HYDROXYUREA
     Indication: Blood iron increased
  11. DARBEPOETIN ALFA [Concomitant]
     Active Substance: DARBEPOETIN ALFA
     Indication: Red blood cell count decreased
     Dosage: EVERY10 DAYS
     Route: 042

REACTIONS (35)
  - Renal injury [Unknown]
  - Asthenia [Unknown]
  - Feeling abnormal [Unknown]
  - Movement disorder [Not Recovered/Not Resolved]
  - Discouragement [Unknown]
  - Parkinson^s disease [Unknown]
  - Essential tremor [Unknown]
  - Malaise [Unknown]
  - Polycythaemia vera [Unknown]
  - Malignant neoplasm progression [Not Recovered/Not Resolved]
  - Primary myelofibrosis [Unknown]
  - Pyrexia [Unknown]
  - Hydrocephalus [Not Recovered/Not Resolved]
  - Incontinence [Unknown]
  - Infection [Unknown]
  - Kidney infection [Unknown]
  - Mobility decreased [Unknown]
  - Renal mass [Unknown]
  - Haemoglobin decreased [Unknown]
  - Mood swings [Unknown]
  - Epistaxis [Recovering/Resolving]
  - Gait disturbance [Unknown]
  - Speech disorder [Unknown]
  - Fall [Unknown]
  - Illness [Unknown]
  - Weight increased [Unknown]
  - Off label use [Unknown]
  - Product availability issue [Unknown]
  - Ill-defined disorder [Unknown]
  - General physical health deterioration [Recovering/Resolving]
  - Infection susceptibility increased [Unknown]
  - Mood altered [Unknown]
  - Fatigue [Unknown]
  - Renal disorder [Not Recovered/Not Resolved]
  - Decreased appetite [Not Recovered/Not Resolved]

NARRATIVE: CASE EVENT DATE: 20220101
